FAERS Safety Report 4398975-2 (Version None)
Quarter: 2004Q3

REPORT INFORMATION
  Report Type: 
  Country: None (occurrence: None)
  Receive Date: 20040712
  Receipt Date: 20040628
  Transmission Date: 20050211
  Serious: Yes (Hospitalization)
  Sender: FDA-Public Use
  Company Number: US-JNJFOC-20040608538

PATIENT
  Age: 78 Year
  Sex: Female
  Weight: 48.9885 kg

DRUGS (8)
  1. REMICADE [Suspect]
     Indication: RHEUMATOID ARTHRITIS
     Dosage: INTRAVENOUS
     Route: 042
     Dates: start: 20040609
  2. PREDNISONE [Concomitant]
  3. FOLIC ACID [Concomitant]
  4. NORVASC [Concomitant]
  5. NEXIUM [Concomitant]
  6. ACETAMINOPHEN [Concomitant]
  7. ADVAIR (SERETIDE MITE) [Concomitant]
  8. MESALAMINE [Concomitant]

REACTIONS (2)
  - IMMOBILE [None]
  - PYREXIA [None]
